FAERS Safety Report 11849288 (Version 1)
Quarter: 2015Q4

REPORT INFORMATION
  Report Type: Spontaneous
  Country: AM (occurrence: AM)
  Receive Date: 20151218
  Receipt Date: 20151218
  Transmission Date: 20160305
  Serious: Yes (Other)
  Sender: FDA-Public Use
  Company Number: AM-ROCHE-1678565

PATIENT
  Age: 5 Year
  Sex: Male
  Weight: 21 kg

DRUGS (2)
  1. ACTEMRA [Suspect]
     Active Substance: TOCILIZUMAB
     Indication: JUVENILE IDIOPATHIC ARTHRITIS
     Dosage: ONCE MONTHLY
     Route: 042
     Dates: start: 20150505
  2. METHOTREXATE [Concomitant]
     Active Substance: METHOTREXATE
     Indication: JUVENILE IDIOPATHIC ARTHRITIS
     Dosage: ONCE PER WEEK
     Route: 048
     Dates: start: 20150505

REACTIONS (2)
  - Complement factor C4 decreased [Not Recovered/Not Resolved]
  - Complement factor C3 decreased [Not Recovered/Not Resolved]

NARRATIVE: CASE EVENT DATE: 20151125
